FAERS Safety Report 21764552 (Version 2)
Quarter: 2024Q1

REPORT INFORMATION
  Report Type: Spontaneous
  Country: RU (occurrence: None)
  Receive Date: 20221222
  Receipt Date: 20240329
  Transmission Date: 20240410
  Serious: Yes (Other)
  Sender: FDA-Public Use
  Company Number: RU-ROCHE-3247273

PATIENT
  Age: 61 Year
  Sex: Female

DRUGS (4)
  1. VEMURAFENIB [Suspect]
     Active Substance: VEMURAFENIB
     Indication: Metastases to central nervous system
     Dosage: 960 MG TWICE DAILY
     Route: 065
  2. VEMURAFENIB [Suspect]
     Active Substance: VEMURAFENIB
     Route: 065
  3. COBIMETINIB [Suspect]
     Active Substance: COBIMETINIB
     Indication: Metastases to central nervous system
     Dosage: 60 MG/DAY (3 TABLETS, 20 MG?EACH) FOR 21 DAYS/WITH 7-DAY INTERVAL
     Route: 065
  4. NIVOLUMAB [Concomitant]
     Active Substance: NIVOLUMAB
     Dates: start: 202106, end: 202109

REACTIONS (7)
  - Pneumonia [Unknown]
  - Disease progression [Unknown]
  - Lung disorder [Unknown]
  - Coronavirus infection [Unknown]
  - Therapy partial responder [Unknown]
  - Alanine aminotransferase increased [Unknown]
  - Aspartate aminotransferase increased [Unknown]

NARRATIVE: CASE EVENT DATE: 20211001
